FAERS Safety Report 20949932 (Version 1)
Quarter: 2022Q2

REPORT INFORMATION
  Report Type: Spontaneous
  Country: US (occurrence: US)
  Receive Date: 20220613
  Receipt Date: 20220613
  Transmission Date: 20220721
  Serious: Yes (Death, Hospitalization, Other)
  Sender: FDA-Public Use
  Company Number: US-SUN PHARMACEUTICAL INDUSTRIES LTD-2022R1-339987

PATIENT
  Age: 34 Year
  Sex: Female

DRUGS (2)
  1. OXYCODONE [Suspect]
     Active Substance: OXYCODONE
     Indication: Pain
     Dosage: UNK
     Route: 042
  2. DIPHENHYDRAMINE [Suspect]
     Active Substance: DIPHENHYDRAMINE
     Indication: Product used for unknown indication
     Dosage: UNK
     Route: 042

REACTIONS (9)
  - Self-medication [Fatal]
  - Incorrect route of product administration [Fatal]
  - Pulseless electrical activity [Fatal]
  - Infection [Fatal]
  - Lung disorder [Fatal]
  - Secondary amyloidosis [Fatal]
  - Granuloma [Fatal]
  - Drug abuser [Fatal]
  - Sepsis [Fatal]
